FAERS Safety Report 16447514 (Version 1)
Quarter: 2019Q2

REPORT INFORMATION
  Report Type: Spontaneous
  Country: CA (occurrence: CA)
  Receive Date: 20190619
  Receipt Date: 20190619
  Transmission Date: 20190711
  Serious: Yes (Hospitalization)
  Sender: FDA-Public Use
  Company Number: CA-B.I. PHARMACEUTICALS,INC./RIDGEFIELD-2019-BI-026491

PATIENT
  Age: 58 Year
  Sex: Female

DRUGS (1)
  1. SYNJARDY [Suspect]
     Active Substance: EMPAGLIFLOZIN\METFORMIN HYDROCHLORIDE
     Indication: PRODUCT USED FOR UNKNOWN INDICATION
     Dosage: STRENGTH AND UNIT DOSE: 5/1000 MG; DAILY DOSE: 10/2000MG
     Route: 065
     Dates: start: 2017

REACTIONS (4)
  - General physical health deterioration [Recovered/Resolved]
  - Diabetic ketoacidosis [Recovered/Resolved]
  - Tibia fracture [Unknown]
  - Humerus fracture [Unknown]

NARRATIVE: CASE EVENT DATE: 201711
